FAERS Safety Report 10228182 (Version 1)
Quarter: 2014Q2

REPORT INFORMATION
  Report Type: Spontaneous
  Country: US (occurrence: US)
  Receive Date: 20140610
  Receipt Date: 20140610
  Transmission Date: 20141212
  Serious: Yes (Hospitalization, Other)
  Sender: FDA-Public Use
  Company Number: US-B.I. PHARMACEUTICALS,INC./RIDGEFIELD-2014-BI-25551BP

PATIENT
  Age: 74 Year
  Sex: Female
  Weight: 54 kg

DRUGS (10)
  1. COMBIVENT [Suspect]
     Indication: CHRONIC OBSTRUCTIVE PULMONARY DISEASE
     Dosage: STRENGTH: 18 MCG / 103 MCG
     Route: 055
     Dates: start: 201206, end: 201404
  2. ASPIRIN [Concomitant]
     Indication: CARDIAC DISORDER
     Dosage: 81 MG
     Route: 048
     Dates: start: 201312
  3. EFFIENT [Concomitant]
     Dosage: 10 MG
     Route: 048
     Dates: start: 201312
  4. METOPROLOL [Concomitant]
     Dosage: 100 MG
     Route: 048
     Dates: start: 201312
  5. ATORVASTATIN [Concomitant]
     Dosage: 40 MG
     Route: 048
     Dates: start: 201312
  6. SPIRONOLACTONE [Concomitant]
     Dosage: 25 MG
     Route: 048
     Dates: start: 201312
  7. RAMIPRIL [Concomitant]
     Indication: HYPERTENSION
     Dosage: 2.5 MG
     Route: 048
     Dates: start: 2010
  8. PREDNISONE [Concomitant]
     Indication: ASTHMA
     Dosage: 10 MG
     Route: 048
     Dates: start: 2012
  9. VITAMIN D [Concomitant]
     Indication: OSTEOPOROSIS
     Dosage: 1 ANZ
     Route: 048
     Dates: start: 2009
  10. CALCIUM [Concomitant]
     Indication: SUPPLEMENTATION THERAPY
     Dosage: 600 MG
     Route: 048
     Dates: start: 2009

REACTIONS (1)
  - Myocardial infarction [Recovered/Resolved]
